FAERS Safety Report 16389936 (Version 2)
Quarter: 2019Q2

REPORT INFORMATION
  Report Type: Spontaneous
  Country: US (occurrence: US)
  Receive Date: 20190604
  Receipt Date: 20190621
  Transmission Date: 20190711
  Serious: Yes (Other)
  Sender: FDA-Public Use
  Company Number: US-ASTRAZENECA-2018SF64787

PATIENT
  Sex: Male

DRUGS (22)
  1. PREVACID [Suspect]
     Active Substance: LANSOPRAZOLE
     Route: 065
     Dates: start: 1990, end: 2011
  2. FENOFIBRATE. [Concomitant]
     Active Substance: FENOFIBRATE
  3. TRICOR [Concomitant]
     Active Substance: FENOFIBRATE
  4. MINOCYCLINE [Concomitant]
     Active Substance: MINOCYCLINE\MINOCYCLINE HYDROCHLORIDE
  5. DOXYCYCLINE. [Concomitant]
     Active Substance: DOXYCYCLINE
  6. DIOVAN [Concomitant]
     Active Substance: VALSARTAN
  7. BENICAR [Concomitant]
     Active Substance: OLMESARTAN MEDOXOMIL
  8. VENTOLIN [Concomitant]
     Active Substance: ALBUTEROL SULFATE
  9. TRAMADOL. [Concomitant]
     Active Substance: TRAMADOL
  10. NEXIUM [Suspect]
     Active Substance: ESOMEPRAZOLE MAGNESIUM
     Route: 048
     Dates: start: 20080121
  11. PRILOSEC [Suspect]
     Active Substance: OMEPRAZOLE MAGNESIUM
     Route: 048
     Dates: start: 1990, end: 2011
  12. PREDNISONE. [Concomitant]
     Active Substance: PREDNISONE
  13. WARFARIN [Concomitant]
     Active Substance: WARFARIN
  14. NEXIUM [Suspect]
     Active Substance: ESOMEPRAZOLE MAGNESIUM
     Route: 048
     Dates: start: 1990, end: 2011
  15. VIAGRA [Concomitant]
     Active Substance: SILDENAFIL CITRATE
  16. LOSARTAN. [Concomitant]
     Active Substance: LOSARTAN
  17. PROTONIX [Suspect]
     Active Substance: PANTOPRAZOLE SODIUM
     Indication: GASTROOESOPHAGEAL REFLUX DISEASE
     Dosage: 1 TAB, ORAL, BEFORE BREAKFAST
     Route: 048
  18. TEKTURNA [Concomitant]
     Active Substance: ALISKIREN HEMIFUMARATE
  19. LOVASTATIN. [Concomitant]
     Active Substance: LOVASTATIN
  20. NEXIUM [Suspect]
     Active Substance: ESOMEPRAZOLE MAGNESIUM
     Route: 048
     Dates: start: 20080121, end: 20110311
  21. PROTONIX [Suspect]
     Active Substance: PANTOPRAZOLE SODIUM
     Indication: GASTROOESOPHAGEAL REFLUX DISEASE
     Route: 065
     Dates: start: 1990, end: 2011
  22. INDOMETHACIN. [Concomitant]
     Active Substance: INDOMETHACIN

REACTIONS (4)
  - Chronic kidney disease [Unknown]
  - Renal failure [Unknown]
  - Renal injury [Unknown]
  - Acute kidney injury [Unknown]
